FAERS Safety Report 9386617 (Version 2)
Quarter: 2013Q3

REPORT INFORMATION
  Report Type: Report from Study
  Country: UY (occurrence: UY)
  Receive Date: 20130708
  Receipt Date: 20130716
  Transmission Date: 20140515
  Serious: Yes (Hospitalization)
  Sender: FDA-Public Use
  Company Number: UY-ROCHE-1231771

PATIENT
  Sex: Male

DRUGS (2)
  1. XELODA [Suspect]
     Indication: COLON CANCER
     Dosage: 1500 MG AT AM + 1000 MG AT PM
     Route: 048
     Dates: start: 20130118
  2. XELODA [Suspect]
     Dosage: 1000 MG AM + 1000 MG PM
     Route: 048

REACTIONS (2)
  - Palmar-plantar erythrodysaesthesia syndrome [Recovering/Resolving]
  - Cardiac disorder [Recovered/Resolved]
